FAERS Safety Report 15542513 (Version 1)
Quarter: 2018Q4

REPORT INFORMATION
  Report Type: Spontaneous
  Country: GB (occurrence: GB)
  Receive Date: 20181023
  Receipt Date: 20181023
  Transmission Date: 20190205
  Serious: Yes (Other)
  Sender: FDA-Public Use
  Company Number: GB-PFIZER INC-2018422573

PATIENT
  Age: 36 Year
  Sex: Male

DRUGS (1)
  1. PREGABALIN. [Suspect]
     Active Substance: PREGABALIN

REACTIONS (8)
  - Akathisia [Unknown]
  - Influenza like illness [Unknown]
  - Drug abuse [Unknown]
  - Dependence [Unknown]
  - Feeling drunk [Unknown]
  - Insomnia [Unknown]
  - Withdrawal syndrome [Unknown]
  - Emotional distress [Unknown]
